FAERS Safety Report 16730726 (Version 1)
Quarter: 2019Q4

REPORT INFORMATION
  Report Type: Spontaneous
  Country: US (occurrence: US)
  Receive Date: 20190822
  Receipt Date: 20190822
  Transmission Date: 20200122
  Serious: Yes (Other)
  Sender: FDA-Public Use
  Company Number: None

PATIENT
  Age: 33 Year
  Sex: Female
  Weight: 53.55 kg

DRUGS (5)
  1. BUPRENORPHINE 8MG/NARCAN 2MG 2.5 FILMS SUBLINGUAL [Concomitant]
  2. DR. REDDYS BUPRENORPHINE 8MG/2MG NALOXONE FILM [Suspect]
     Active Substance: BUPRENORPHINE HYDROCHLORIDE\NALOXONE
     Indication: DRUG DEPENDENCE
     Dosage: ?          QUANTITY:1 FILM;?
     Route: 060
     Dates: start: 20190810, end: 20190822
  3. PAXIL 40G ONCE A DAY [Concomitant]
  4. DIAZEPAM 1MG ONCE A DAY [Concomitant]
  5. RITALIN 20MG TWICE A DAY [Concomitant]

REACTIONS (3)
  - Malaise [None]
  - Product substitution issue [None]
  - Drug withdrawal syndrome [None]

NARRATIVE: CASE EVENT DATE: 20190811
